FAERS Safety Report 10513973 (Version 1)
Quarter: 2014Q4

REPORT INFORMATION
  Report Type: Spontaneous
  Country: US (occurrence: US)
  Receive Date: 20141013
  Receipt Date: 20141013
  Transmission Date: 20150528
  Serious: Yes (Other)
  Sender: FDA-Public Use
  Company Number: PHHY2014US130492

PATIENT
  Age: 8 Year
  Sex: Male

DRUGS (6)
  1. PREDNISONE. [Suspect]
     Active Substance: PREDNISONE
     Indication: IMMUNOSUPPRESSION
  2. MYCOPHENOLATE MOFETIL. [Suspect]
     Active Substance: MYCOPHENOLATE MOFETIL
     Indication: ALVEOLITIS ALLERGIC
     Route: 065
  3. MYCOPHENOLATE MOFETIL. [Suspect]
     Active Substance: MYCOPHENOLATE MOFETIL
     Indication: IMMUNOSUPPRESSION
  4. TACROLIMUS. [Suspect]
     Active Substance: TACROLIMUS
     Indication: PNEUMONITIS
     Route: 065
  5. PREDNISONE. [Suspect]
     Active Substance: PREDNISONE
     Indication: ALVEOLITIS ALLERGIC
     Route: 065
  6. TACROLIMUS. [Suspect]
     Active Substance: TACROLIMUS
     Indication: IMMUNOSUPPRESSION

REACTIONS (13)
  - Mydriasis [Recovered/Resolved]
  - Angioimmunoblastic T-cell lymphoma [Recovered/Resolved]
  - Lymphadenopathy [Recovered/Resolved]
  - Rash papular [Recovered/Resolved]
  - IIIrd nerve paralysis [Recovered/Resolved]
  - Plasmacytosis [Recovered/Resolved]
  - Eosinophilia [Recovered/Resolved]
  - Marrow hyperplasia [Recovered/Resolved]
  - Diplopia [Recovered/Resolved]
  - Eyelid ptosis [Recovered/Resolved]
  - Post transplant lymphoproliferative disorder [Recovered/Resolved]
  - Erythropoiesis abnormal [Recovered/Resolved]
  - Eye movement disorder [Recovered/Resolved]
